FAERS Safety Report 18268355 (Version 1)
Quarter: 2020Q3

REPORT INFORMATION
  Report Type: Spontaneous
  Country: US (occurrence: US)
  Receive Date: 20200915
  Receipt Date: 20200915
  Transmission Date: 20201103
  Serious: Yes (Hospitalization, Other)
  Sender: FDA-Public Use
  Company Number: US-MACLEODS PHARMACEUTICALS US LTD-MAC2020028007

PATIENT

DRUGS (1)
  1. ESCITALOPRAM [Suspect]
     Active Substance: ESCITALOPRAM OXALATE
     Indication: PRODUCT USED FOR UNKNOWN INDICATION
     Dosage: UNK UNK, SINGLE OF INGESTION OF 100?200 MG
     Route: 065

REACTIONS (3)
  - Serotonin syndrome [Recovered/Resolved]
  - Antidepressant drug level increased [Recovered/Resolved]
  - Intentional overdose [Recovered/Resolved]
